FAERS Safety Report 16262480 (Version 2)
Quarter: 2019Q3

REPORT INFORMATION
  Report Type: Report from Study
  Country: US (occurrence: US)
  Receive Date: 20190501
  Receipt Date: 20190703
  Transmission Date: 20191004
  Serious: Yes (Other)
  Sender: FDA-Public Use
  Company Number: US-BIOGEN-2019BI00730849

PATIENT
  Age: 54 Year
  Sex: Female

DRUGS (1)
  1. TYSABRI [Suspect]
     Active Substance: NATALIZUMAB
     Indication: MULTIPLE SCLEROSIS
     Route: 042
     Dates: start: 20061011

REACTIONS (7)
  - Central nervous system lesion [Unknown]
  - Asthenia [Unknown]
  - Pneumonia legionella [Unknown]
  - Paralysis [Unknown]
  - Arthropathy [Unknown]
  - Tendon rupture [Unknown]
  - Dementia [Unknown]

NARRATIVE: CASE EVENT DATE: 20130422
